FAERS Safety Report 21620975 (Version 2)
Quarter: 2023Q1

REPORT INFORMATION
  Report Type: Report from Study
  Country: US (occurrence: US)
  Receive Date: 20221121
  Receipt Date: 20230302
  Transmission Date: 20230417
  Serious: No
  Sender: FDA-Public Use
  Company Number: US-ABBVIE-22K-163-4534710-00

PATIENT
  Age: 70 Year
  Sex: Male

DRUGS (2)
  1. IMBRUVICA [Suspect]
     Active Substance: IBRUTINIB
     Indication: Chronic lymphocytic leukaemia
     Route: 048
  2. IMBRUVICA [Suspect]
     Active Substance: IBRUTINIB
     Indication: Chronic lymphocytic leukaemia
     Route: 048
     Dates: start: 20220824

REACTIONS (7)
  - White blood cell count abnormal [Unknown]
  - Nausea [Unknown]
  - Diarrhoea [Unknown]
  - Rash pruritic [Unknown]
  - Decreased appetite [Unknown]
  - Papule [Unknown]
  - Vomiting [Unknown]

NARRATIVE: CASE EVENT DATE: 20220907
